FAERS Safety Report 19620294 (Version 2)
Quarter: 2021Q3

REPORT INFORMATION
  Report Type: Report from Study
  Country: ES (occurrence: ES)
  Receive Date: 20210728
  Receipt Date: 20210729
  Transmission Date: 20211014
  Serious: Yes (Hospitalization)
  Sender: FDA-Public Use
  Company Number: ES-ROCHE-2869272

PATIENT
  Age: 83 Year
  Sex: Female
  Weight: 42 kg

DRUGS (6)
  1. PARACETAMOL [Concomitant]
     Active Substance: ACETAMINOPHEN
     Indication: PROPHYLAXIS
     Route: 048
     Dates: start: 20210608
  2. ATEZOLIZUMAB. [Suspect]
     Active Substance: ATEZOLIZUMAB
     Indication: TRIPLE NEGATIVE BREAST CANCER
     Dosage: THREE TREATMENTS WERE ADMINISTERED FROM 15/APR/2021 TO 25/JUN/2021.
     Route: 042
     Dates: start: 20210415, end: 20210625
  3. FERRUM (UNK INGREDIENTS) [Concomitant]
     Indication: PROPHYLAXIS
     Dosage: 1000 UI
     Route: 042
     Dates: start: 20210713, end: 20210714
  4. BEVACIZUMAB. [Suspect]
     Active Substance: BEVACIZUMAB
     Indication: TRIPLE NEGATIVE BREAST CANCER
     Dosage: THREE TREATMENTS WERE ADMINISTERED FROM 15/APR/2021 TO 25/JUN/2021.
     Route: 042
     Dates: start: 20210415, end: 20210625
  5. FAMOTIDINE. [Concomitant]
     Active Substance: FAMOTIDINE
     Indication: PROPHYLAXIS
     Route: 048
     Dates: start: 20210712
  6. PACLITAXEL. [Suspect]
     Active Substance: PACLITAXEL
     Indication: TRIPLE NEGATIVE BREAST CANCER
     Dosage: THREE TREATMENTS WERE ADMINISTERED FROM 15/APR/2021 TO 25/JUN/2021.
     Route: 042
     Dates: start: 20210415, end: 20210625

REACTIONS (1)
  - Immune-mediated nephritis [Recovered/Resolved]

NARRATIVE: CASE EVENT DATE: 20210708
